FAERS Safety Report 10068576 (Version 1)
Quarter: 2014Q2

REPORT INFORMATION
  Report Type: Spontaneous
  Country: US (occurrence: US)
  Receive Date: 20140409
  Receipt Date: 20140409
  Transmission Date: 20141212
  Serious: Yes (Death)
  Sender: FDA-Public Use
  Company Number: US-INCYTE CORPORATION-2014IN000949

PATIENT
  Age: 65 Year
  Sex: Male

DRUGS (8)
  1. JAKAFI [Suspect]
     Indication: MYELOFIBROSIS
     Dosage: 25 MG, BID
     Route: 048
     Dates: start: 20130322, end: 20140402
  2. AMLODIPINE [Concomitant]
  3. ATENOLOL [Concomitant]
  4. FINASTERIDE [Concomitant]
  5. HYDRALAZINE [Concomitant]
  6. CLONIDINE [Concomitant]
  7. IBUPROFEN [Concomitant]
  8. REVLIMID [Concomitant]

REACTIONS (1)
  - Death [Fatal]
